FAERS Safety Report 8829009 (Version 2)
Quarter: 2013Q1

REPORT INFORMATION
  Report Type: Spontaneous
  Country: US (occurrence: US)
  Receive Date: 20121008
  Receipt Date: 20130120
  Transmission Date: 20140127
  Serious: No
  Sender: FDA-Public Use
  Company Number: US-009507513-1210USA002084

PATIENT
  Age: 21 Year
  Sex: Female
  Weight: 68.27 kg

DRUGS (2)
  1. IMPLANON [Suspect]
     Indication: CONTRACEPTION
     Dosage: 3 YEARS IMPLANT
     Route: 059
     Dates: start: 20120801
  2. INSULIN [Concomitant]

REACTIONS (1)
  - Amenorrhoea [Unknown]
